FAERS Safety Report 18263438 (Version 3)
Quarter: 2020Q4

REPORT INFORMATION
  Report Type: Spontaneous
  Country: DE (occurrence: DE)
  Receive Date: 20200914
  Receipt Date: 20201127
  Transmission Date: 20210113
  Serious: Yes (Hospitalization, Other)
  Sender: FDA-Public Use
  Company Number: DE-009507513-2009DEU001201

PATIENT
  Age: 64 Year
  Sex: Male

DRUGS (9)
  1. REMICADE [Suspect]
     Active Substance: INFLIXIMAB
     Indication: PSORIASIS
     Dosage: 500 MILLIGRAM,SOLUTION FOR INFUSION
     Route: 042
     Dates: start: 20161103, end: 20161121
  2. AMLODIPINE [Concomitant]
     Active Substance: AMLODIPINE BESYLATE
     Indication: PRODUCT USED FOR UNKNOWN INDICATION
     Dosage: 1-0-0 (ONCE DAILY)
     Route: 065
  3. PLAVIX [Concomitant]
     Active Substance: CLOPIDOGREL BISULFATE
     Indication: PRODUCT USED FOR UNKNOWN INDICATION
     Dosage: 1-0-0, ONCE DAILY
     Route: 065
  4. METFORMIN [Concomitant]
     Active Substance: METFORMIN HYDROCHLORIDE
     Indication: TYPE 2 DIABETES MELLITUS
     Dosage: 1000 MILLIGRAM, BID (1-0-1), (TWICE A DAY)
     Route: 065
  5. ASS 100 [Concomitant]
     Active Substance: ASPIRIN
     Indication: PRODUCT USED FOR UNKNOWN INDICATION
     Dosage: 0-1-0, ONCE DAILY
     Route: 065
  6. JANUVIA [Suspect]
     Active Substance: SITAGLIPTIN PHOSPHATE
     Indication: TYPE 2 DIABETES MELLITUS
     Dosage: 100 MILLIGRAM, ONCE DAILY
     Route: 048
     Dates: end: 20161123
  7. SIMVASTATIN. [Concomitant]
     Active Substance: SIMVASTATIN
     Indication: PRODUCT USED FOR UNKNOWN INDICATION
     Dosage: 0-0-1, ONCE DAILY
     Route: 065
  8. LISINOPRIL. [Concomitant]
     Active Substance: LISINOPRIL
     Indication: PRODUCT USED FOR UNKNOWN INDICATION
     Dosage: 1-0-0, ONCE DAILY
     Route: 065
  9. PANTOZOL [Concomitant]
     Active Substance: PANTOPRAZOLE SODIUM
     Indication: PRODUCT USED FOR UNKNOWN INDICATION
     Dosage: 1-0-0, ONCE DAILY
     Route: 065

REACTIONS (17)
  - Hypersensitivity [Recovered/Resolved]
  - Insulin C-peptide increased [Unknown]
  - Drug ineffective [Unknown]
  - Blood sodium decreased [Unknown]
  - PCO2 increased [Unknown]
  - Haematocrit increased [Unknown]
  - Blood lactic acid increased [Unknown]
  - Lymphocyte count decreased [Unknown]
  - Glycosylated haemoglobin increased [Unknown]
  - PO2 decreased [Unknown]
  - Glomerular filtration rate increased [Unknown]
  - Diabetic metabolic decompensation [Unknown]
  - Glycosylated haemoglobin increased [Unknown]
  - Neutrophil count increased [Unknown]
  - Blood bicarbonate increased [Unknown]
  - General physical health deterioration [Unknown]
  - Blood glucose increased [Recovered/Resolved]

NARRATIVE: CASE EVENT DATE: 201611
